FAERS Safety Report 7376244-6 (Version None)
Quarter: 2011Q1

REPORT INFORMATION
  Report Type: 
  Country: None (occurrence: None)
  Receive Date: 20110325
  Receipt Date: 20110301
  Transmission Date: 20110831
  Serious: No
  Sender: FDA-Public Use
  Company Number: US-B.I. PHARMACEUTICALS,INC./RIDGEFIELD-2011-BP-07340BP

PATIENT
  Age: 74 Year
  Sex: Female

DRUGS (8)
  1. ALBUTEROL [Concomitant]
     Indication: ASTHMA
  2. PRADAXA [Suspect]
     Indication: ATRIAL FIBRILLATION
     Dosage: 300 MG
     Route: 048
     Dates: start: 20110215
  3. NOVOLOG [Concomitant]
     Indication: DIABETES MELLITUS
  4. JANUMET [Concomitant]
     Indication: DIABETES MELLITUS
  5. PRADAXA [Suspect]
     Indication: CEREBROVASCULAR ACCIDENT PROPHYLAXIS
  6. PROAIR HFA [Concomitant]
     Indication: ASTHMA
  7. INSULIN [Concomitant]
     Indication: DIABETES MELLITUS
  8. LANTUS [Concomitant]
     Indication: DIABETES MELLITUS

REACTIONS (5)
  - DYSPHAGIA [None]
  - ABDOMINAL PAIN UPPER [None]
  - DIARRHOEA [None]
  - HEADACHE [None]
  - RECTAL HAEMORRHAGE [None]
